FAERS Safety Report 9277367 (Version 1)
Quarter: 2013Q2

REPORT INFORMATION
  Report Type: Spontaneous
  Country: US (occurrence: None)
  Receive Date: 20130503
  Receipt Date: 20130503
  Transmission Date: 20140414
  Serious: Yes (Hospitalization)
  Sender: FDA-Public Use
  Company Number: None

PATIENT
  Age: 56 Year
  Sex: Female
  Weight: 52.16 kg

DRUGS (2)
  1. FLUOXETINE HCL [Suspect]
     Indication: DEPRESSION
     Route: 048
     Dates: start: 20120704, end: 20120802
  2. FLUOXETINE HCL [Suspect]
     Route: 048
     Dates: start: 20120803, end: 20120805

REACTIONS (2)
  - Depression [None]
  - Suicidal ideation [None]
